FAERS Safety Report 10171812 (Version 2)
Quarter: 2014Q2

REPORT INFORMATION
  Report Type: Spontaneous
  Country: US (occurrence: None)
  Receive Date: 20140512
  Receipt Date: 20140516
  Transmission Date: 20141212
  Serious: Yes (Hospitalization)
  Sender: FDA-Public Use
  Company Number: UTC-048299

PATIENT
  Age: 42 Year
  Sex: Female
  Weight: 54.4 kg

DRUGS (5)
  1. REMODULIN [Suspect]
     Indication: SYSTEMIC LUPUS ERYTHEMATOSUS
     Dosage: 0.07833 UG/KG/MIN, CONTINUING, IV DRIP
     Route: 041
     Dates: start: 20081117
  2. REMODULIN [Suspect]
     Indication: COR PULMONALE CHRONIC
     Dosage: 0.07833 UG/KG/MIN, CONTINUING, IV DRIP
     Route: 041
     Dates: start: 20081117
  3. TRACLEER (BOSENTAN) (UNKNOWN) [Concomitant]
  4. REVATIO (SILDENAFIL CITRATE) (UNKNOWN) [Concomitant]
  5. FLOLAN (EPOPROSTENOL) (UNKNOWN) [Concomitant]

REACTIONS (4)
  - Sepsis [None]
  - Supraventricular tachycardia [None]
  - Cardiac valve vegetation [None]
  - Aortic valve calcification [None]
